FAERS Safety Report 10456157 (Version 1)
Quarter: 2014Q3

REPORT INFORMATION
  Report Type: Spontaneous
  Country: US (occurrence: None)
  Receive Date: 20140912
  Receipt Date: 20140912
  Transmission Date: 20150326
  Serious: Yes (Other)
  Sender: FDA-Public Use
  Company Number: BD-2014-0055

PATIENT
  Age: 59 Year
  Sex: Male

DRUGS (2)
  1. MORPHINE SULFATE. [Suspect]
     Active Substance: MORPHINE SULFATE
     Indication: PAIN
  2. METHADONE [Suspect]
     Active Substance: METHADONE HYDROCHLORIDE
     Indication: PAIN

REACTIONS (7)
  - Influenza like illness [None]
  - Electrocardiogram QT prolonged [None]
  - Diarrhoea [None]
  - Unresponsive to stimuli [None]
  - Ventricular extrasystoles [None]
  - Ventricular tachycardia [None]
  - Hypokalaemia [None]
